FAERS Safety Report 9401280 (Version 1)
Quarter: 2013Q3

REPORT INFORMATION
  Report Type: Spontaneous
  Country: US (occurrence: US)
  Receive Date: 20130715
  Receipt Date: 20130715
  Transmission Date: 20140515
  Serious: No
  Sender: FDA-Public Use
  Company Number: US-009507513-1307USA005630

PATIENT
  Age: 45 Year
  Sex: Male
  Weight: 81.63 kg

DRUGS (1)
  1. ZOCOR [Suspect]
     Indication: BLOOD CHOLESTEROL INCREASED
     Dosage: UNK
     Route: 048
     Dates: start: 2003

REACTIONS (3)
  - Erection increased [Unknown]
  - Therapeutic response unexpected [Unknown]
  - Libido increased [Unknown]
